FAERS Safety Report 10101710 (Version 1)
Quarter: 2014Q2

REPORT INFORMATION
  Report Type: Spontaneous
  Country: US (occurrence: None)
  Receive Date: 20140423
  Receipt Date: 20140423
  Transmission Date: 20141212
  Serious: Yes (Hospitalization)
  Sender: FDA-Public Use
  Company Number: None

PATIENT
  Age: 60 Year
  Sex: Male
  Weight: 90.2 kg

DRUGS (2)
  1. SPIRONOLACTONE [Suspect]
     Indication: HEPATITIS C
     Route: 048
     Dates: start: 20120702, end: 20140409
  2. SPIRONOLACTONE [Suspect]
     Indication: HEPATIC CIRRHOSIS
     Route: 048
     Dates: start: 20120702, end: 20140409

REACTIONS (3)
  - Suicidal ideation [None]
  - Depression [None]
  - Hyperkalaemia [None]
